FAERS Safety Report 8108079-0 (Version None)
Quarter: 2012Q1

REPORT INFORMATION
  Report Type: 
  Country: None (occurrence: None)
  Receive Date: 20120202
  Receipt Date: 20120131
  Transmission Date: 20120608
  Serious: Yes (Hospitalization)
  Sender: FDA-Public Use
  Company Number: DE-BRISTOL-MYERS SQUIBB COMPANY-15297997

PATIENT
  Age: 59 Year
  Sex: Male
  Weight: 111 kg

DRUGS (13)
  1. ONGLYZA [Suspect]
     Indication: DIABETES MELLITUS
     Dosage: 1 DF: 1*1DAY
     Route: 048
     Dates: start: 20100726, end: 20100920
  2. ENALAPRIL MALEATE [Suspect]
  3. DOCITON [Concomitant]
     Dosage: 1 DF = 40 UNIT NOT MENTIONED,.5 UNIT NOT MENTIONED TAKEN 3 TIMES PER DAY
  4. ASPIRIN [Suspect]
     Dosage: 1 DF = 100 UNIT NOT MENTIONED
  5. FUROSEMIDE [Concomitant]
  6. METFORMIN HCL [Suspect]
     Indication: DIABETES MELLITUS
     Dosage: 1 DF: 2*1 DAY ABOUT 2007.APROX 3 YEARS
     Route: 048
     Dates: start: 20070101
  7. AMLODIPINE [Suspect]
     Dosage: 1/2 PER DAY
  8. AVANDAMET [Concomitant]
     Dosage: 1 DF= 4 MG/1
  9. ATENOLOL [Suspect]
  10. TORSEMIDE [Suspect]
     Dosage: 1/2 PER DAY
  11. JANUMET [Concomitant]
     Dosage: 1 DF = 50/850 MG
  12. SIMVASTATIN [Suspect]
     Dosage: APROX 2 YEARS ABOUT 2008
     Route: 048
     Dates: start: 20080101
  13. SPIRONOLACTONE [Concomitant]
     Dosage: 1 DF = 100 UNIT NOT MENTIONED

REACTIONS (6)
  - BLOOD BILIRUBIN INCREASED [None]
  - LEUKOCYTOSIS [None]
  - BLOOD ALBUMIN DECREASED [None]
  - ASCITES [None]
  - TRANSAMINASES INCREASED [None]
  - GAMMA-GLUTAMYLTRANSFERASE INCREASED [None]
